FAERS Safety Report 6878113-4 (Version None)
Quarter: 2010Q2

REPORT INFORMATION
  Report Type: 
  Country: None (occurrence: None)
  Receive Date: 20100616
  Receipt Date: 20100216
  Transmission Date: 20101027
  Serious: No
  Sender: FDA-Public Use
  Company Number: DSA_42638_2010

PATIENT
  Sex: Female

DRUGS (7)
  1. XENAZINE [Suspect]
     Indication: DYSKINESIA
     Dosage: 6.25 MG BID ORAL, 6.25 MG TID ORAL, 6.25 MG BID ORAL : 1 WEEK UNTIL NOT CONTINUING
     Route: 048
     Dates: start: 20090723
  2. XENAZINE [Suspect]
     Indication: HUNTINGTON'S CHOREA
     Dosage: 6.25 MG BID ORAL, 6.25 MG TID ORAL, 6.25 MG BID ORAL : 1 WEEK UNTIL NOT CONTINUING
     Route: 048
     Dates: start: 20090723
  3. TRAZODONE [Concomitant]
  4. PRISTIQ [Concomitant]
  5. LITHIUM [Concomitant]
  6. BUSPAR [Concomitant]
  7. SYNTHROID [Concomitant]

REACTIONS (5)
  - DRUG ADMINISTRATION ERROR [None]
  - DRUG INEFFECTIVE FOR UNAPPROVED INDICATION [None]
  - FEELING ABNORMAL [None]
  - INSOMNIA [None]
  - TARDIVE DYSKINESIA [None]
